FAERS Safety Report 5416506-2 (Version None)
Quarter: 2007Q3

REPORT INFORMATION
  Report Type: 
  Country: None (occurrence: None)
  Receive Date: 20070816
  Receipt Date: 20070709
  Transmission Date: 20080115
  Serious: Yes (Hospitalization, Other)
  Sender: FDA-Public Use
  Company Number: PHEH2007US06434

PATIENT
  Age: 76 Year
  Sex: Male

DRUGS (8)
  1. ZELNORM [Suspect]
     Indication: GASTRIC DISORDER
     Dosage: 2 MG, BID
     Route: 048
     Dates: start: 20030509, end: 20070411
  2. PLAVIX [Concomitant]
     Indication: CORONARY ARTERY DISEASE
     Dosage: UNK, QD
     Route: 048
  3. ALLOPURINOL [Concomitant]
     Dosage: 300 MG, QD
     Route: 048
  4. INSULIN [Concomitant]
     Indication: DIABETES MELLITUS
     Dosage: UNK, UNK
  5. LIPITOR [Concomitant]
     Dosage: UNK, UNK
  6. VALIUM [Concomitant]
     Dosage: UNK, UNK
  7. ALBUTEROL [Concomitant]
     Dosage: UNK, UNK
  8. FLOMAX [Concomitant]
     Dosage: UNK, UNK

REACTIONS (17)
  - ASTHENIA [None]
  - BLOOD CHOLESTEROL INCREASED [None]
  - CARDIAC DISORDER [None]
  - CARDIAC FLUTTER [None]
  - CEREBROVASCULAR ACCIDENT [None]
  - CHRONIC OBSTRUCTIVE PULMONARY DISEASE [None]
  - CONDITION AGGRAVATED [None]
  - CORONARY ARTERY DISEASE [None]
  - DIARRHOEA [None]
  - DIZZINESS [None]
  - DYSPNOEA [None]
  - GASTROOESOPHAGEAL REFLUX DISEASE [None]
  - PNEUMONIA [None]
  - RESPIRATORY DISORDER [None]
  - SURGERY [None]
  - TRANSIENT ISCHAEMIC ATTACK [None]
  - VASCULAR GRAFT [None]
